FAERS Safety Report 15254738 (Version 1)
Quarter: 2018Q3

REPORT INFORMATION
  Report Type: Spontaneous
  Country: US (occurrence: US)
  Receive Date: 20180808
  Receipt Date: 20180808
  Transmission Date: 20181010
  Serious: No
  Sender: FDA-Public Use
  Company Number: US-SA-2018SA215234

PATIENT
  Sex: Female

DRUGS (14)
  1. ALIROCUMAB PREFILLED PEN [Suspect]
     Active Substance: ALIROCUMAB
     Indication: HYPERCHOLESTEROLAEMIA
     Dosage: UNK, QOW
  2. PRALUENT [Suspect]
     Active Substance: ALIROCUMAB
     Indication: HYPERCHOLESTEROLAEMIA
     Dosage: 75 MG, QOW
     Route: 058
  3. ACETAMINOPHEN AND CODEINE [Concomitant]
     Active Substance: ACETAMINOPHEN\CODEINE PHOSPHATE
  4. HYDROCORT [HYDROCORTISONE ACETATE] [Concomitant]
     Dosage: UNK %
  5. KETOCONAZOLE. [Concomitant]
     Active Substance: KETOCONAZOLE
  6. METOPROLOL. [Concomitant]
     Active Substance: METOPROLOL
     Dosage: 50 MG
  7. GABAPENTIN. [Concomitant]
     Active Substance: GABAPENTIN
  8. IRBESARTAN. [Concomitant]
     Active Substance: IRBESARTAN
     Dosage: 300 MG
  9. LANSOPRAZOLE. [Concomitant]
     Active Substance: LANSOPRAZOLE
     Dosage: 30 MG
  10. NORCO [Concomitant]
     Active Substance: ACETAMINOPHEN\HYDROCODONE BITARTRATE
  11. AMLODIPINE [Concomitant]
     Active Substance: AMLODIPINE BESYLATE
     Dosage: 5 MG
  12. AMOXICILLIN. [Concomitant]
     Active Substance: AMOXICILLIN
     Dosage: 500 MG
  13. PREDNISONE. [Concomitant]
     Active Substance: PREDNISONE
  14. OMEPRAZOLE. [Concomitant]
     Active Substance: OMEPRAZOLE
     Dosage: 40 MG

REACTIONS (2)
  - Wrong technique in product usage process [Unknown]
  - Underdose [Unknown]
